FAERS Safety Report 18132566 (Version 2)
Quarter: 2020Q3

REPORT INFORMATION
  Report Type: Spontaneous
  Country: IT (occurrence: IT)
  Receive Date: 20200811
  Receipt Date: 20200820
  Transmission Date: 20201103
  Serious: Yes (Hospitalization, Other)
  Sender: FDA-Public Use
  Company Number: IT-AUROBINDO-AUR-APL-2020-038313

PATIENT
  Age: 18 Year
  Sex: Female

DRUGS (5)
  1. ASPIRIN. [Suspect]
     Active Substance: ASPIRIN
     Indication: ANGINA PECTORIS
     Dosage: 50 MILLIGRAM, ONCE A DAY
     Route: 065
  2. METOLAZONE. [Suspect]
     Active Substance: METOLAZONE
     Indication: ANGINA PECTORIS
     Dosage: 0.25 MILLIGRAM, ONCE A DAY
     Route: 065
  3. CARVEDILOL. [Suspect]
     Active Substance: CARVEDILOL
     Indication: ANGINA PECTORIS
     Dosage: 6.25 MILLIGRAM, ONCE A DAY
     Route: 065
  4. FUROSEMIDE. [Suspect]
     Active Substance: FUROSEMIDE
     Indication: ANGINA PECTORIS
     Dosage: 37.5 MILLIGRAM, ONCE A DAY
     Route: 065
  5. SPIRONOLACTONE. [Suspect]
     Active Substance: SPIRONOLACTONE
     Indication: ANGINA PECTORIS
     Dosage: 10 MILLIGRAM, ONCE A DAY
     Route: 065

REACTIONS (11)
  - Drug ineffective [Unknown]
  - Ventricular hypokinesia [Unknown]
  - Angina pectoris [Recovered/Resolved]
  - Hepatomegaly [Unknown]
  - Cough [Unknown]
  - Dyspnoea at rest [Unknown]
  - Condition aggravated [Recovered/Resolved]
  - Sinus tachycardia [Unknown]
  - Aortic stenosis [Unknown]
  - Jugular vein distension [Unknown]
  - Peripheral swelling [Unknown]
